FAERS Safety Report 10526267 (Version 2)
Quarter: 2014Q4

REPORT INFORMATION
  Report Type: Spontaneous
  Country: GB (occurrence: GB)
  Receive Date: 20141018
  Receipt Date: 20141104
  Transmission Date: 20150528
  Serious: Yes (Death)
  Sender: FDA-Public Use
  Company Number: GB-ACCORD-026428

PATIENT
  Age: 33 Year
  Sex: Male

DRUGS (3)
  1. DIAMORPHINE [Interacting]
     Active Substance: DIACETYLMORPHINE
     Route: 065
  2. TRAMADOL/TRAMADOL HYDROCHLORIDE [Suspect]
     Active Substance: TRAMADOL HYDROCHLORIDE
     Route: 065
     Dates: start: 20140710, end: 20140710
  3. DIAZEPAM. [Interacting]
     Active Substance: DIAZEPAM
     Route: 065
     Dates: start: 20140710, end: 20140710

REACTIONS (5)
  - Drug interaction [Fatal]
  - Condition aggravated [Fatal]
  - Overdose [None]
  - Langerhans^ cell histiocytosis [Fatal]
  - Overdose [Fatal]

NARRATIVE: CASE EVENT DATE: 20140710
